FAERS Safety Report 4807693-5 (Version None)
Quarter: 2005Q4

REPORT INFORMATION
  Report Type: 
  Country: None (occurrence: None)
  Receive Date: 20051020
  Receipt Date: 20051007
  Transmission Date: 20060501
  Serious: Yes (Other)
  Sender: FDA-Public Use
  Company Number: 2005089693

PATIENT
  Sex: Male
  Weight: 124.7392 kg

DRUGS (7)
  1. VIAGRA [Suspect]
     Indication: ILL-DEFINED DISORDER
     Dosage: 25 MG, ORAL
     Route: 048
     Dates: start: 20040101
  2. CIALIS [Suspect]
     Indication: ILL-DEFINED DISORDER
  3. LEVITRA [Suspect]
     Indication: ILL-DEFINED DISORDER
  4. WELLBUTRIN XL [Concomitant]
  5. SEROQUEL [Concomitant]
  6. LITHIUM CARBONATE [Concomitant]
  7. LEVOTHROID [Concomitant]

REACTIONS (3)
  - CIRCUMCISION [None]
  - DRUG INEFFECTIVE [None]
  - TRANSURETHRAL PROSTATECTOMY [None]
